FAERS Safety Report 11813262 (Version 1)
Quarter: 2015Q4

REPORT INFORMATION
  Report Type: Spontaneous
  Country: IT (occurrence: IT)
  Receive Date: 20151209
  Receipt Date: 20151209
  Transmission Date: 20160305
  Serious: Yes (Other)
  Sender: FDA-Public Use
  Company Number: IT-ROCHE-1675127

PATIENT
  Age: 34 Year
  Sex: Male

DRUGS (4)
  1. ROCEFIN [Suspect]
     Active Substance: CEFTRIAXONE SODIUM
     Indication: OROPHARYNGEAL PAIN
     Dosage: ^500 MG / 2 ML 1 VIAL OF POWDER
     Route: 030
     Dates: start: 20150611, end: 20150611
  2. AULIN [Concomitant]
     Active Substance: NIMESULIDE
     Indication: OROPHARYNGEAL PAIN
  3. CLARITHROMYCIN. [Concomitant]
     Active Substance: CLARITHROMYCIN
     Indication: OROPHARYNGEAL PAIN
     Route: 048
     Dates: start: 20150604, end: 20150604
  4. OKI [Concomitant]
     Active Substance: KETOPROFEN LYSINE
     Indication: OROPHARYNGEAL PAIN

REACTIONS (3)
  - Palatal oedema [Recovering/Resolving]
  - Peritonsillar abscess [Recovering/Resolving]
  - Dyspnoea [Recovering/Resolving]

NARRATIVE: CASE EVENT DATE: 20150611
